FAERS Safety Report 13880810 (Version 5)
Quarter: 2018Q2

REPORT INFORMATION
  Report Type: Spontaneous
  Country: DE (occurrence: DE)
  Receive Date: 20170818
  Receipt Date: 20180509
  Transmission Date: 20180711
  Serious: Yes (Death, Hospitalization, Other)
  Sender: FDA-Public Use
  Company Number: DE-009507513-1708USA007528

PATIENT
  Age: 12 Year
  Sex: Female
  Weight: 31 kg

DRUGS (6)
  1. AMLODIPINE [Concomitant]
     Active Substance: AMLODIPINE BESYLATE
     Indication: HYPERTENSION
     Dosage: 3.75 MG, ONCE DAILY
     Dates: start: 201403, end: 201507
  2. OMEPRAZOLE. [Concomitant]
     Active Substance: OMEPRAZOLE
     Indication: PROPHYLAXIS
     Dosage: 20 MG, DAILY
     Dates: start: 201404, end: 201507
  3. SULFAMETHOXAZOLE (+) TRIMETHOPRIM [Concomitant]
     Active Substance: SULFAMETHOXAZOLE\TRIMETHOPRIM
     Indication: ANTIFUNGAL PROPHYLAXIS
     Dosage: 2X 80 MG (MONDAYS AND WEDNESDAYS)
     Dates: start: 201404, end: 201506
  4. RAMIPRIL. [Concomitant]
     Active Substance: RAMIPRIL
     Indication: HYPERTENSION
     Dosage: 5 MG, ONCE DAILY
     Route: 048
     Dates: start: 201403, end: 201507
  5. VALACYCLOVIR HYDROCHLORIDE. [Concomitant]
     Active Substance: VALACYCLOVIR HYDROCHLORIDE
     Indication: PROPHYLAXIS
     Dosage: 2X500 MG
     Route: 048
     Dates: start: 201404, end: 201507
  6. KEYTRUDA [Suspect]
     Active Substance: PEMBROLIZUMAB
     Indication: T-CELL TYPE ACUTE LEUKAEMIA
     Dosage: 3.3 MG/KG, SINGLE DOSE ; IN TOTAL
     Dates: start: 20150601, end: 20150601

REACTIONS (10)
  - Graft versus host disease in lung [Fatal]
  - Acute graft versus host disease in skin [Fatal]
  - Acute graft versus host disease in liver [Fatal]
  - Renal failure [Fatal]
  - Off label use [Unknown]
  - Graft versus host disease in eye [Fatal]
  - Inflammation [Fatal]
  - Acute respiratory distress syndrome [Fatal]
  - Acute graft versus host disease [Fatal]
  - Histiocytosis haematophagic [Fatal]

NARRATIVE: CASE EVENT DATE: 20150608
